FAERS Safety Report 23431163 (Version 1)
Quarter: 2024Q1

REPORT INFORMATION
  Report Type: Spontaneous
  Country: CA (occurrence: None)
  Receive Date: 20240123
  Receipt Date: 20240123
  Transmission Date: 20240410
  Serious: Yes (Hospitalization)
  Sender: FDA-Public Use
  Company Number: 2024A015867

PATIENT
  Sex: Female

DRUGS (1)
  1. ESOMEPRAZOLE [Suspect]
     Active Substance: ESOMEPRAZOLE
     Indication: Product used for unknown indication

REACTIONS (5)
  - Foreign body in throat [Recovering/Resolving]
  - Throat irritation [Recovering/Resolving]
  - Product physical issue [Recovering/Resolving]
  - Product size issue [Recovering/Resolving]
  - Product use complaint [Recovering/Resolving]
